FAERS Safety Report 10419456 (Version 1)
Quarter: 2014Q3

REPORT INFORMATION
  Report Type: Spontaneous
  Country: US (occurrence: US)
  Receive Date: 20140829
  Receipt Date: 20140829
  Transmission Date: 20150326
  Serious: No
  Sender: FDA-Public Use
  Company Number: US-009507513-1408USA016566

PATIENT
  Sex: Male

DRUGS (1)
  1. AFRIN [Suspect]
     Active Substance: OXYMETAZOLINE
     Indication: INSOMNIA
     Dosage: UNK, UNKNOWN
     Route: 045

REACTIONS (3)
  - Wrong technique in drug usage process [Unknown]
  - Drug administered to patient of inappropriate age [Unknown]
  - Off label use [Unknown]
